FAERS Safety Report 7235647-0 (Version None)
Quarter: 2011Q1

REPORT INFORMATION
  Report Type: 
  Country: None (occurrence: None)
  Receive Date: 20110120
  Receipt Date: 20101112
  Transmission Date: 20110831
  Serious: No
  Sender: FDA-Public Use
  Company Number: US-BAYER-2010-004722

PATIENT
  Sex: Female

DRUGS (1)
  1. ALEVE (CAPLET) [Suspect]
     Indication: HEADACHE
     Dosage: COUNT BOTTLE 24S
     Route: 048
     Dates: start: 20101105

REACTIONS (2)
  - OROPHARYNGEAL BLISTERING [None]
  - FOREIGN BODY [None]
